FAERS Safety Report 14927580 (Version 1)
Quarter: 2018Q2

REPORT INFORMATION
  Report Type: Spontaneous
  Country: DE (occurrence: DE)
  Receive Date: 20180523
  Receipt Date: 20180523
  Transmission Date: 20180711
  Serious: Yes (Other)
  Sender: FDA-Public Use
  Company Number: DE-TEVA-2018-DE-892855

PATIENT
  Sex: Female

DRUGS (3)
  1. SALBUTAMOL-RATIOPHARM N DOSIERAEROSOL [Suspect]
     Active Substance: ALBUTEROL
     Route: 055
  2. FORMATRIS PULVER [Concomitant]
  3. RANITIDIN DURA [Concomitant]

REACTIONS (13)
  - Movement disorder [Unknown]
  - Dysphonia [Unknown]
  - Respiratory arrest [Unknown]
  - Dizziness [Unknown]
  - Palpitations [Unknown]
  - Choking [Unknown]
  - Gait disturbance [Unknown]
  - Product use issue [Unknown]
  - Oedema peripheral [Unknown]
  - Product substitution issue [Unknown]
  - Dyspnoea [Unknown]
  - Hypertension [Unknown]
  - Aphonia [Unknown]
